FAERS Safety Report 8352358-9 (Version None)
Quarter: 2012Q2

REPORT INFORMATION
  Report Type: 
  Country: None (occurrence: None)
  Receive Date: 20120511
  Receipt Date: 20120504
  Transmission Date: 20120825
  Serious: Yes (Hospitalization)
  Sender: FDA-Public Use
  Company Number: US-PFIZER INC-2012110259

PATIENT
  Sex: Female

DRUGS (1)
  1. FLAGYL [Suspect]
     Indication: CLOSTRIDIAL INFECTION
     Dosage: UNK
     Dates: start: 20120125, end: 20120319

REACTIONS (4)
  - EATING DISORDER [None]
  - WEIGHT DECREASED [None]
  - SPINAL DISORDER [None]
  - DYSGEUSIA [None]
